FAERS Safety Report 7577813-0 (Version None)
Quarter: 2011Q2

REPORT INFORMATION
  Report Type: 
  Country: None (occurrence: None)
  Receive Date: 20110628
  Receipt Date: 20110615
  Transmission Date: 20111010
  Serious: Yes (Death, Other)
  Sender: FDA-Public Use
  Company Number: PHHY2010US25243

PATIENT
  Sex: Male
  Weight: 86.168 kg

DRUGS (1)
  1. EXJADE [Suspect]
     Indication: ACUTE MYELOID LEUKAEMIA
     Dosage: 2500 MG, QD
     Route: 048
     Dates: start: 20090406

REACTIONS (2)
  - DEATH [None]
  - PLATELET COUNT DECREASED [None]
